FAERS Safety Report 12482698 (Version 2)
Quarter: 2016Q3

REPORT INFORMATION
  Report Type: Report from Study
  Country: US (occurrence: US)
  Receive Date: 20160620
  Receipt Date: 20160729
  Transmission Date: 20161109
  Serious: Yes (Other)
  Sender: FDA-Public Use
  Company Number: US-GILEAD-2016-0213108

PATIENT
  Age: 70 Year
  Sex: Male

DRUGS (12)
  1. VANCOMYCIN                         /00314402/ [Concomitant]
     Active Substance: VANCOMYCIN
  2. FLORASTOR [Concomitant]
     Active Substance: SACCHAROMYCES CEREVISIAE
  3. RITUXAN [Concomitant]
     Active Substance: RITUXIMAB
  4. VESICARE [Concomitant]
     Active Substance: SOLIFENACIN SUCCINATE
  5. PANTOPRAZOLE                       /01263204/ [Concomitant]
     Active Substance: PANTOPRAZOLE SODIUM
  6. POLY-IRON [Concomitant]
     Active Substance: IRON
  7. SIMVASTATIN. [Concomitant]
     Active Substance: SIMVASTATIN
  8. IDELALISIB [Suspect]
     Active Substance: IDELALISIB
     Indication: CHRONIC LYMPHOCYTIC LEUKAEMIA (IN REMISSION)
     Dosage: 150 MG, BID
     Route: 048
     Dates: start: 20151115
  9. LIDOCAINE. [Concomitant]
     Active Substance: LIDOCAINE
  10. MORPHINE [Concomitant]
     Active Substance: MORPHINE
  11. SULFAMETHOXAZOLE [Concomitant]
     Active Substance: SULFAMETHOXAZOLE
  12. WARFARIN [Concomitant]
     Active Substance: WARFARIN

REACTIONS (7)
  - Off label use [Not Recovered/Not Resolved]
  - Eye disorder [Not Recovered/Not Resolved]
  - Gastric disorder [Not Recovered/Not Resolved]
  - Nausea [Unknown]
  - Cataract [Not Recovered/Not Resolved]
  - Hot flush [Unknown]
  - Dyspepsia [Unknown]

NARRATIVE: CASE EVENT DATE: 201511
